FAERS Safety Report 9788862 (Version 1)
Quarter: 2013Q4

REPORT INFORMATION
  Report Type: Spontaneous
  Country: FR (occurrence: FR)
  Receive Date: 20131230
  Receipt Date: 20131230
  Transmission Date: 20140711
  Serious: Yes (Other)
  Sender: FDA-Public Use
  Company Number: FR-GLAXOSMITHKLINE-B0929193A

PATIENT
  Age: 62 Year
  Sex: Male
  Weight: 82 kg

DRUGS (3)
  1. AVAMYS [Suspect]
     Indication: ALLERGIC RESPIRATORY DISEASE
     Route: 045
  2. CETIRIZINE [Concomitant]
     Indication: HYPERSENSITIVITY
     Route: 048
  3. ZESTORETIC [Concomitant]
     Indication: HYPERTENSION
     Route: 048

REACTIONS (4)
  - Malaise [Recovered/Resolved]
  - Hypotension [Recovered/Resolved]
  - Asthenia [Recovered/Resolved]
  - Burning sensation [Recovered/Resolved]
